FAERS Safety Report 6299571-2 (Version None)
Quarter: 2009Q3

REPORT INFORMATION
  Report Type: 
  Country: None (occurrence: None)
  Receive Date: 20090805
  Receipt Date: 20090805
  Transmission Date: 20100115
  Serious: Yes (Other)
  Sender: FDA-Public Use
  Company Number: None

PATIENT
  Age: 65 Year
  Sex: Female
  Weight: 68.0396 kg

DRUGS (1)
  1. ZICAM SPRAY UNKNOWN UNKNOWN [Suspect]
     Indication: NASAL CONGESTION
     Dosage: UNKNOWN ONE MONTH ~ 2003 AND 2004

REACTIONS (2)
  - ANOSMIA [None]
  - HYPOGEUSIA [None]
